FAERS Safety Report 9332105 (Version 1)
Quarter: 2013Q2

REPORT INFORMATION
  Report Type: Report from Study
  Country: CA (occurrence: CA)
  Receive Date: 20130606
  Receipt Date: 20130606
  Transmission Date: 20140414
  Serious: Yes (Other)
  Sender: FDA-Public Use
  Company Number: CA-ROCHE-1179494

PATIENT
  Age: 63 Year
  Sex: Female
  Weight: 72.6 kg

DRUGS (9)
  1. RITUXIMAB [Suspect]
     Indication: RHEUMATOID ARTHRITIS
     Route: 042
     Dates: start: 20110413
  2. ACETAMINOPHEN [Concomitant]
     Indication: PREMEDICATION
     Route: 048
     Dates: start: 20110413
  3. CELEBREX [Concomitant]
  4. DILAUDID [Concomitant]
  5. TYLENOL [Concomitant]
     Route: 065
  6. LOSEC (CANADA) [Concomitant]
  7. ZESTRIL [Concomitant]
     Indication: BLOOD PRESSURE
  8. METHYLPREDNISOLONE [Concomitant]
     Indication: PREMEDICATION
     Route: 042
     Dates: start: 20110413
  9. DIPHENHYDRAMINE HCL [Concomitant]
     Route: 048
     Dates: end: 20110413

REACTIONS (3)
  - Scar [Unknown]
  - Arthropathy [Not Recovered/Not Resolved]
  - Paraesthesia oral [Recovered/Resolved]
